FAERS Safety Report 13744217 (Version 2)
Quarter: 2017Q3

REPORT INFORMATION
  Report Type: Spontaneous
  Country: US (occurrence: US)
  Receive Date: 20170712
  Receipt Date: 20170821
  Transmission Date: 20171127
  Serious: No
  Sender: FDA-Public Use
  Company Number: US-ASTRAZENECA-2017SE68558

PATIENT
  Age: 30 Year
  Sex: Male
  Weight: 86.2 kg

DRUGS (1)
  1. SYMBICORT [Suspect]
     Active Substance: BUDESONIDE\FORMOTEROL FUMARATE DIHYDRATE
     Indication: ASTHMA
     Dosage: SYMBICORT 160/4.5 MCG, 1 INHALATION DAILY.
     Route: 055
     Dates: start: 2014

REACTIONS (4)
  - Intentional device misuse [Unknown]
  - Product quality issue [Unknown]
  - Memory impairment [Unknown]
  - Off label use [Unknown]

NARRATIVE: CASE EVENT DATE: 2014
